FAERS Safety Report 12691429 (Version 2)
Quarter: 2016Q3

REPORT INFORMATION
  Report Type: Spontaneous
  Country: PT (occurrence: PT)
  Receive Date: 20160826
  Receipt Date: 20160830
  Transmission Date: 20161109
  Serious: Yes (Other)
  Sender: FDA-Public Use
  Company Number: PT-FRESENIUS KABI-FK201605869

PATIENT
  Age: 49 Year
  Sex: Female

DRUGS (5)
  1. MAGNESIUM SULFATE (OTHER MANUFACTURER) [Suspect]
     Active Substance: MAGNESIUM SULFATE
     Indication: TORSADE DE POINTES
     Route: 042
     Dates: start: 2014
  2. LIDOCAINE (MANUFACTURER UNKNOWN) [Suspect]
     Active Substance: LIDOCAINE
     Indication: TORSADE DE POINTES
     Route: 065
     Dates: start: 1996
  3. AMIODARONE [Concomitant]
     Active Substance: AMIODARONE
     Indication: TORSADE DE POINTES
     Route: 065
  4. LIDOCAINE (MANUFACTURER UNKNOWN) [Suspect]
     Active Substance: LIDOCAINE
     Route: 065
     Dates: start: 2014, end: 2014
  5. ISOPRENALINE (MANUFACTURER UNKNOWN) [Suspect]
     Active Substance: ISOPROTERENOL HYDROCHLORIDE
     Indication: TORSADE DE POINTES
     Route: 065

REACTIONS (2)
  - Drug ineffective [Recovered/Resolved]
  - Product use issue [Recovered/Resolved]

NARRATIVE: CASE EVENT DATE: 2014
